APPROVED DRUG PRODUCT: TASMAR
Active Ingredient: TOLCAPONE
Strength: 200MG
Dosage Form/Route: TABLET;ORAL
Application: N020697 | Product #002
Applicant: BAUSCH HEALTH US LLC
Approved: Jan 29, 1998 | RLD: No | RS: No | Type: DISCN